FAERS Safety Report 20388495 (Version 1)
Quarter: 2022Q1

REPORT INFORMATION
  Report Type: Spontaneous
  Country: US (occurrence: US)
  Receive Date: 20220128
  Receipt Date: 20220128
  Transmission Date: 20220424
  Serious: No
  Sender: FDA-Public Use
  Company Number: US-ALLERGAN-2140067US

PATIENT
  Sex: Female

DRUGS (12)
  1. BOTOX [Suspect]
     Active Substance: ONABOTULINUMTOXINA
     Indication: Migraine
     Dosage: UNK, SINGLE
     Dates: start: 2017
  2. DOXEPIN [Concomitant]
     Active Substance: DOXEPIN
  3. KETOCONAZOLE [Concomitant]
     Active Substance: KETOCONAZOLE
     Indication: Seborrhoeic dermatitis
  4. LEVOTHYROXINE [Concomitant]
     Active Substance: LEVOTHYROXINE
     Indication: Hypothyroidism
  5. MOMETASONE [Concomitant]
     Active Substance: MOMETASONE
     Indication: Seborrhoeic dermatitis
     Dosage: 4-6 TIMES PER WEEK
     Route: 061
  6. MOMETASONE [Concomitant]
     Active Substance: MOMETASONE
     Indication: Eczema
     Route: 061
  7. BENEFIBER [Concomitant]
     Active Substance: STARCH, WHEAT
     Indication: Constipation
     Dosage: UNK, QD
  8. MIRALAX [Concomitant]
     Active Substance: POLYETHYLENE GLYCOL 3350
     Indication: Constipation
     Dosage: UNK, QD
  9. LITHIUM CARBONATE [Concomitant]
     Active Substance: LITHIUM CARBONATE
     Indication: Bipolar disorder
     Dosage: 600 MG, QPM
  10. ROSUVASTATIN [Concomitant]
     Active Substance: ROSUVASTATIN
     Dosage: 20 MG, QPM
  11. NITROGLYCERIN [Concomitant]
     Active Substance: NITROGLYCERIN
     Indication: Chest pain
     Route: 060
  12. ASPIRIN [Concomitant]
     Active Substance: ASPIRIN
     Indication: Chest pain

REACTIONS (2)
  - Blood pressure abnormal [Not Recovered/Not Resolved]
  - Dry eye [Not Recovered/Not Resolved]

NARRATIVE: CASE EVENT DATE: 20210101
